FAERS Safety Report 20820053 (Version 1)
Quarter: 2022Q2

REPORT INFORMATION
  Report Type: Report from Study
  Country: BR (occurrence: BR)
  Receive Date: 20220512
  Receipt Date: 20220512
  Transmission Date: 20220720
  Serious: Yes (Other)
  Sender: FDA-Public Use
  Company Number: BR-NOVARTISPH-NVSC2022BR096909

PATIENT
  Age: 76 Year
  Sex: Female
  Weight: 64 kg

DRUGS (10)
  1. DIOVAN [Suspect]
     Active Substance: VALSARTAN
     Indication: Hypertension
     Dosage: 1 DOSAGE FORM, QD (STARTED MORE THAN 2 YEARS AGO)
     Route: 065
     Dates: end: 202112
  2. DIOVAN [Suspect]
     Active Substance: VALSARTAN
     Dosage: UNK (STARTED MORE THAN 2 YEARS AGO)
     Route: 065
     Dates: start: 202204
  3. DIOVAN HCT [Suspect]
     Active Substance: HYDROCHLOROTHIAZIDE\VALSARTAN
     Indication: Hypertension
     Dosage: 1 DOSAGE FORM, QD (VALSATANA + HIDROCLOROTISA 320+12.5 MG, USE AFTER NOON)
     Route: 065
     Dates: start: 202112
  4. MONOCORDIL [Concomitant]
     Active Substance: ISOSORBIDE MONONITRATE
     Indication: Hypertension
     Dosage: 1 DOSAGE FORM, QD (AT NIGHT,  STARTED MANY YEARS AGO)
     Route: 048
  5. ATENOLOL [Concomitant]
     Active Substance: ATENOLOL
     Indication: Hypertension
     Dosage: 2 DOSAGE FORM, QD (AT NIGHT, STARTED MANY YEARS AGO)
     Route: 048
  6. METFORMIN [Concomitant]
     Active Substance: METFORMIN HYDROCHLORIDE
     Indication: Diabetes mellitus
     Dosage: 1 DOSAGE FORM, TID (STARTED 8 YEARS AGO)
     Route: 048
  7. METHYLDOPA [Concomitant]
     Active Substance: METHYLDOPA
     Indication: Hypertension
     Dosage: 1 DOSAGE FORM, BID (STARTED MANY YEARS AGO)
     Route: 048
  8. PANTOPRAZOLE [Concomitant]
     Active Substance: PANTOPRAZOLE
     Indication: Gastrointestinal disorder
     Dosage: 1 DOSAGE FORM, QD (MANY YEARS AGO)
     Route: 048
  9. ASPIRIN [Concomitant]
     Active Substance: ASPIRIN
     Indication: Product used for unknown indication
     Dosage: 1 DOSAGE FORM, QD (AT LUNCH, STARTED MANY YEARS AGO)
     Route: 048
  10. SIMVASTATIN [Concomitant]
     Active Substance: SIMVASTATIN
     Indication: Product used for unknown indication
     Dosage: 1 DOSAGE FORM, QD (STARTED MANY YERS AGO AND STOPPED 01 YEAR AGO)
     Route: 048

REACTIONS (4)
  - Blood pressure increased [Recovered/Resolved]
  - Hypertension [Recovered/Resolved]
  - Headache [Recovered/Resolved]
  - Drug ineffective [Recovered/Resolved]

NARRATIVE: CASE EVENT DATE: 20220401
